FAERS Safety Report 13272272 (Version 8)
Quarter: 2017Q2

REPORT INFORMATION
  Report Type: Report from Study
  Country: US (occurrence: US)
  Receive Date: 20170227
  Receipt Date: 20170522
  Transmission Date: 20170830
  Serious: Yes (Hospitalization, Other)
  Sender: FDA-Public Use
  Company Number: US-GILEAD-2017-0259281

PATIENT
  Age: 32 Year
  Sex: Female

DRUGS (5)
  1. REMODULIN [Suspect]
     Active Substance: TREPROSTINIL
     Indication: PRODUCT USED FOR UNKNOWN INDICATION
     Dosage: UNK
     Route: 058
  2. COUMADIN [Concomitant]
     Active Substance: WARFARIN SODIUM
  3. AMBRISENTAN [Suspect]
     Active Substance: AMBRISENTAN
     Indication: PRODUCT USED FOR UNKNOWN INDICATION
     Dosage: 10 MG, QD
     Route: 065
     Dates: start: 20100215
  4. REVATIO [Concomitant]
     Active Substance: SILDENAFIL CITRATE
     Dosage: UNK
  5. REMODULIN [Suspect]
     Active Substance: TREPROSTINIL
     Dosage: UNK
     Route: 042

REACTIONS (15)
  - Pneumonia [Unknown]
  - Thrombosis [Unknown]
  - Blood iron decreased [Not Recovered/Not Resolved]
  - Device related infection [Unknown]
  - Staphylococcal infection [Unknown]
  - Vomiting [Unknown]
  - Pain [Unknown]
  - Sepsis [Unknown]
  - Fatigue [Unknown]
  - Bacteraemia [Unknown]
  - Platelet count decreased [Not Recovered/Not Resolved]
  - Dyspnoea [Unknown]
  - Pyrexia [Unknown]
  - Infusion site pain [Unknown]
  - Device dislocation [Unknown]
